FAERS Safety Report 13835041 (Version 2)
Quarter: 2018Q4

REPORT INFORMATION
  Report Type: Spontaneous
  Country: US (occurrence: US)
  Receive Date: 20170804
  Receipt Date: 20181129
  Transmission Date: 20190204
  Serious: Yes (Other)
  Sender: FDA-Public Use
  Company Number: US-PFIZER INC-2017334504

PATIENT
  Age: 56 Year
  Sex: Male
  Weight: 97.96 kg

DRUGS (3)
  1. LYRICA [Suspect]
     Active Substance: PREGABALIN
     Dosage: 600 MG, DAILY
  2. LYRICA [Suspect]
     Active Substance: PREGABALIN
     Dosage: 300 MG, DAILY
  3. TOPROL XL [Suspect]
     Active Substance: METOPROLOL SUCCINATE
     Dosage: 100 MG, 1X/DAY
     Route: 048

REACTIONS (13)
  - Polyneuropathy [Unknown]
  - Feeling hot [Unknown]
  - Productive cough [Unknown]
  - Chest pain [Recovered/Resolved]
  - Pain [Unknown]
  - Back pain [Unknown]
  - Dyspnoea [Unknown]
  - Dyspepsia [Unknown]
  - Nasal congestion [Recovering/Resolving]
  - Intentional product use issue [Unknown]
  - Upper respiratory tract infection [Recovering/Resolving]
  - Fatigue [Unknown]
  - Weight increased [Unknown]
